FAERS Safety Report 9379424 (Version 2)
Quarter: 2013Q3

REPORT INFORMATION
  Report Type: Spontaneous
  Country: CN (occurrence: CN)
  Receive Date: 20130702
  Receipt Date: 20130705
  Transmission Date: 20140515
  Serious: Yes (Death, Hospitalization)
  Sender: FDA-Public Use
  Company Number: CN-SANOFI-AVENTIS-2013SA064514

PATIENT
  Age: 65 Year
  Sex: Male

DRUGS (27)
  1. CITALOPRAM HYDROBROMIDE [Suspect]
     Indication: DEPRESSION
     Route: 048
     Dates: start: 20120116, end: 20120120
  2. CITALOPRAM HYDROBROMIDE [Suspect]
     Indication: ANXIETY
     Route: 048
     Dates: start: 20120116, end: 20120120
  3. CITALOPRAM HYDROBROMIDE [Suspect]
     Indication: DEPRESSION
     Route: 048
     Dates: start: 20120228, end: 20120228
  4. CITALOPRAM HYDROBROMIDE [Suspect]
     Indication: ANXIETY
     Route: 048
     Dates: start: 20120228, end: 20120228
  5. OLANZAPINE [Suspect]
     Indication: DEPRESSION
     Dosage: -FREQUENCY- ONCE EVERY EVENING
     Route: 065
     Dates: start: 20120116, end: 20120120
  6. LORAZEPAM [Suspect]
     Indication: ANXIETY
     Dosage: THE PATIENT TOOK A DOSE ON 29-FEB-2013
     Route: 048
     Dates: start: 20120229, end: 20120229
  7. ISONIAZID [Suspect]
     Indication: DISSEMINATED TUBERCULOSIS
     Route: 065
     Dates: start: 201111, end: 201201
  8. ETHAMBUTOL [Suspect]
     Indication: DISSEMINATED TUBERCULOSIS
     Route: 065
     Dates: start: 201111, end: 201201
  9. RIFAPENTINE [Suspect]
     Indication: DISSEMINATED TUBERCULOSIS
     Route: 065
     Dates: start: 201111, end: 201201
  10. ADRENALINE [Suspect]
     Indication: CIRCULATORY COLLAPSE
     Route: 065
     Dates: start: 20120303, end: 20120303
  11. ADRENALINE [Suspect]
     Indication: RESPIRATORY FAILURE
     Route: 065
     Dates: start: 20120303, end: 20120303
  12. DOPAMINE HYDROCHLORIDE [Suspect]
     Indication: CIRCULATORY COLLAPSE
     Route: 065
     Dates: start: 20120303, end: 20120303
  13. DOPAMINE HYDROCHLORIDE [Suspect]
     Indication: RESPIRATORY FAILURE
     Route: 065
     Dates: start: 20120303, end: 20120303
  14. FLUPENTIXOL [Suspect]
     Indication: DEPRESSION
     Route: 048
     Dates: start: 20120116, end: 20120120
  15. MELITRACEN [Suspect]
     Indication: DEPRESSION
     Route: 048
     Dates: start: 20120116, end: 20120120
  16. FOLIC ACID [Concomitant]
     Route: 048
  17. FOLIC ACID [Concomitant]
     Dates: start: 201202
  18. LEUCOGEN [Concomitant]
  19. LEUCOGEN [Concomitant]
     Dates: start: 201202
  20. NIFEDIPINE [Concomitant]
  21. NIFEDIPINE [Concomitant]
     Dates: start: 201202
  22. ISOSORBIDE MONONITRATE [Concomitant]
  23. CARVEDILOL [Concomitant]
  24. CARVEDILOL [Concomitant]
     Dates: start: 201202
  25. SODIUM BICARBONATE [Concomitant]
     Route: 048
     Dates: start: 201202
  26. FELODIPINE [Concomitant]
     Dates: start: 201202
  27. GLUCUROLACTONE [Concomitant]
     Dates: start: 201202

REACTIONS (10)
  - Acute respiratory failure [Fatal]
  - Listless [Fatal]
  - Breath sounds absent [Fatal]
  - Hyperhidrosis [Fatal]
  - PCO2 increased [Fatal]
  - PO2 decreased [Fatal]
  - Blood pH decreased [Fatal]
  - Hypoaesthesia [Unknown]
  - Vision blurred [Unknown]
  - Drug ineffective [Unknown]
